FAERS Safety Report 5299048-7 (Version None)
Quarter: 2007Q2

REPORT INFORMATION
  Report Type: 
  Country: None (occurrence: None)
  Receive Date: 20070417
  Receipt Date: 20070411
  Transmission Date: 20071010
  Serious: Yes (Hospitalization, Other)
  Sender: FDA-Public Use
  Company Number: US-GLAXOSMITHKLINE-A0614516A

PATIENT
  Age: 40 Year
  Sex: Male

DRUGS (4)
  1. PAXIL [Suspect]
     Indication: DEPRESSION
     Dosage: 20MG IN THE MORNING
     Route: 048
     Dates: start: 19970822, end: 19980129
  2. TRAZODONE HCL [Concomitant]
     Dosage: 2TAB AT NIGHT
  3. LITHIUM CARBONATE [Concomitant]
     Dosage: 2TAB TWICE PER DAY
  4. ATIVAN [Concomitant]
     Dosage: 2MG THREE TIMES PER DAY

REACTIONS (10)
  - ANGER [None]
  - DRUG INEFFECTIVE [None]
  - FEELING OF DESPAIR [None]
  - GUN SHOT WOUND [None]
  - HOMICIDAL IDEATION [None]
  - INJURY [None]
  - INTENTIONAL SELF-INJURY [None]
  - PAIN [None]
  - SUICIDE ATTEMPT [None]
  - SURGERY [None]
